FAERS Safety Report 22001675 (Version 2)
Quarter: 2023Q4

REPORT INFORMATION
  Report Type: Spontaneous
  Country: US (occurrence: US)
  Receive Date: 20230216
  Receipt Date: 20231128
  Transmission Date: 20240109
  Serious: No
  Sender: FDA-Public Use
  Company Number: US-SA-SAC20230215000175

PATIENT
  Sex: Female
  Weight: 58.957 kg

DRUGS (17)
  1. DUPIXENT [Suspect]
     Active Substance: DUPILUMAB
     Indication: Asthma
     Dosage: 300 MG, QOW
     Route: 058
     Dates: start: 20221228
  2. TUMS [Concomitant]
     Active Substance: CALCIUM CARBONATE
     Dosage: UNK
  3. OMEPRAZOLE [Concomitant]
     Active Substance: OMEPRAZOLE
     Dosage: UNK
  4. BETAINE HYDROCHLORIDE [Concomitant]
     Active Substance: BETAINE HYDROCHLORIDE
     Dosage: UNK
  5. GLYCINE [Concomitant]
     Active Substance: GLYCINE
     Dosage: UNK
  6. SYNTHROID [Concomitant]
     Active Substance: LEVOTHYROXINE SODIUM
     Dosage: UNK
  7. ALBUTEROL SULFATE [Concomitant]
     Active Substance: ALBUTEROL SULFATE
     Dosage: UNK
  8. ADVAIR HFA [Concomitant]
     Active Substance: FLUTICASONE PROPIONATE\SALMETEROL XINAFOATE
     Dosage: UNK
  9. CELEBREX [Concomitant]
     Active Substance: CELECOXIB
     Dosage: UNK
  10. WELLBUTRIN SR [Concomitant]
     Active Substance: BUPROPION HYDROCHLORIDE
     Dosage: UNK UNK, BID
  11. GABAPENTIN [Concomitant]
     Active Substance: GABAPENTIN
  12. CYMBALTA [Concomitant]
     Active Substance: DULOXETINE HYDROCHLORIDE
  13. CLONIDINE [Concomitant]
     Active Substance: CLONIDINE
     Dosage: UNK
  14. DILAUDID [Concomitant]
     Active Substance: HYDROMORPHONE HYDROCHLORIDE
     Dosage: UNK
  15. ALBUTEROL SULFATE [Concomitant]
     Active Substance: ALBUTEROL SULFATE
     Dosage: UNK
  16. MOLYBDENUM [Concomitant]
     Active Substance: MOLYBDENUM
     Dosage: UNK
  17. ACTIVATOR [Concomitant]
     Dosage: UNK

REACTIONS (6)
  - Injection site pain [Not Recovered/Not Resolved]
  - Product preparation error [Not Recovered/Not Resolved]
  - Abdominal pain upper [Not Recovered/Not Resolved]
  - Injection site rash [Not Recovered/Not Resolved]
  - Injection site pruritus [Not Recovered/Not Resolved]
  - Injection site erythema [Not Recovered/Not Resolved]
